FAERS Safety Report 16961079 (Version 1)
Quarter: 2019Q4

REPORT INFORMATION
  Report Type: Spontaneous
  Country: US (occurrence: US)
  Receive Date: 20191025
  Receipt Date: 20191025
  Transmission Date: 20200122
  Serious: Yes (Hospitalization)
  Sender: FDA-Public Use
  Company Number: US-SA-2019SA294573

PATIENT
  Age: 57 Year
  Sex: Female

DRUGS (3)
  1. FLUTICASONE. [Concomitant]
     Active Substance: FLUTICASONE
  2. GABAPENTIN. [Concomitant]
     Active Substance: GABAPENTIN
  3. DUPIXENT [Suspect]
     Active Substance: DUPILUMAB
     Dosage: 300 MG, OTHER
     Route: 058
     Dates: start: 20190926

REACTIONS (2)
  - Colitis [Unknown]
  - Gastroenteritis [Unknown]

NARRATIVE: CASE EVENT DATE: 20191014
